FAERS Safety Report 10934753 (Version 1)
Quarter: 2015Q1

REPORT INFORMATION
  Report Type: Spontaneous
  Country: US (occurrence: US)
  Receive Date: 20150320
  Receipt Date: 20150320
  Transmission Date: 20150721
  Serious: No
  Sender: FDA-Public Use
  Company Number: US-GALDERMA-US14004650

PATIENT
  Sex: Female

DRUGS (1)
  1. MIRVASO [Suspect]
     Active Substance: BRIMONIDINE TARTRATE
     Indication: ROSACEA
     Dosage: 0.33%
     Route: 061
     Dates: start: 20140902

REACTIONS (8)
  - Skin discomfort [Recovered/Resolved]
  - Skin warm [Recovered/Resolved]
  - Feeling hot [Recovered/Resolved]
  - Dermatitis contact [Recovered/Resolved]
  - Tenderness [Recovered/Resolved]
  - Rosacea [Recovered/Resolved]
  - Flushing [Recovered/Resolved]
  - Erythema [Recovered/Resolved]
